FAERS Safety Report 25470028 (Version 1)
Quarter: 2025Q2

REPORT INFORMATION
  Report Type: Report from Study
  Country: US (occurrence: US)
  Receive Date: 20250623
  Receipt Date: 20250623
  Transmission Date: 20250717
  Serious: Yes (Death, Hospitalization, Other)
  Sender: JAZZ
  Company Number: US-JAZZ PHARMACEUTICALS-2025-US-012981

PATIENT
  Age: 58 Year
  Sex: Female

DRUGS (1)
  1. ZANIDATAMAB [Suspect]
     Active Substance: ZANIDATAMAB
     Indication: Breast cancer female
     Dates: start: 20250428, end: 20250527

REACTIONS (5)
  - Death [Fatal]
  - Hospitalisation [Unknown]
  - Disease progression [Unknown]
  - Drug effective for unapproved indication [Recovering/Resolving]
  - Off label use [Unknown]

NARRATIVE: CASE EVENT DATE: 20250428
